FAERS Safety Report 5436714-4 (Version None)
Quarter: 2007Q3

REPORT INFORMATION
  Report Type: 
  Country: None (occurrence: None)
  Receive Date: 20070831
  Receipt Date: 20070822
  Transmission Date: 20080115
  Serious: Yes (Death)
  Sender: FDA-Public Use
  Company Number: US-JNJFOC-20070805101

PATIENT
  Sex: Male

DRUGS (2)
  1. DURAGESIC-100 [Suspect]
     Indication: PAIN
     Route: 062
  2. LEVAQUIN [Suspect]
     Indication: PNEUMONIA
     Route: 048

REACTIONS (1)
  - ROAD TRAFFIC ACCIDENT [None]
